FAERS Safety Report 21261272 (Version 1)
Quarter: 2022Q3

REPORT INFORMATION
  Report Type: Spontaneous
  Country: US (occurrence: US)
  Receive Date: 20220826
  Receipt Date: 20220826
  Transmission Date: 20221027
  Serious: No
  Sender: FDA-Public Use
  Company Number: US-Dermavant-000110

PATIENT
  Sex: Female

DRUGS (1)
  1. TAPINAROF [Suspect]
     Active Substance: TAPINAROF
     Indication: Palmoplantar pustulosis
     Dosage: ONE APPLICATION APPLIED DAILY ON THE AFFECTED AREA
     Dates: start: 20220719

REACTIONS (3)
  - Scab [Not Recovered/Not Resolved]
  - Pustule [Recovered/Resolved]
  - Macule [Not Recovered/Not Resolved]

NARRATIVE: CASE EVENT DATE: 20220801
